FAERS Safety Report 26069869 (Version 1)
Quarter: 2025Q4

REPORT INFORMATION
  Report Type: Spontaneous
  Country: US (occurrence: US)
  Receive Date: 20251120
  Receipt Date: 20251120
  Transmission Date: 20260118
  Serious: No
  Sender: CATALYST PHARMA
  Company Number: US-CATALYST PHARMACEUTICALS-US-CATA-25-01218

PATIENT
  Age: 4 Year
  Sex: Male
  Weight: 14.848 kg

DRUGS (4)
  1. AGAMREE [Suspect]
     Active Substance: VAMOROLONE
     Indication: Duchenne muscular dystrophy
     Dosage: 2.2 ML ONCE DAILY
     Route: 048
     Dates: start: 20250809
  2. ZYRTEC [Concomitant]
     Active Substance: CETIRIZINE HYDROCHLORIDE
     Indication: Seasonal allergy
     Dosage: 2.5 MG AS NEEDED
     Route: 065
  3. VITAMIN D [Concomitant]
     Active Substance: VITAMIN D NOS
     Indication: Hypovitaminosis
     Dosage: 1 ML DAILY
     Route: 065
  4. IRON\VITAMINS [Concomitant]
     Active Substance: IRON\VITAMINS
     Indication: Hypovitaminosis
     Dosage: UNK, UNK
     Route: 065

REACTIONS (5)
  - Energy increased [Not Recovered/Not Resolved]
  - Agitation [Not Recovered/Not Resolved]
  - Restlessness [Not Recovered/Not Resolved]
  - Behaviour disorder [Unknown]
  - Middle insomnia [Unknown]

NARRATIVE: CASE EVENT DATE: 20250801
